FAERS Safety Report 13785040 (Version 1)
Quarter: 2017Q3

REPORT INFORMATION
  Report Type: Report from Study
  Country: CO (occurrence: CO)
  Receive Date: 20170725
  Receipt Date: 20170725
  Transmission Date: 20171127
  Serious: Yes (Other)
  Sender: FDA-Public Use
  Company Number: PHHY2017CO100276

PATIENT
  Age: 46 Year
  Sex: Female
  Weight: 68 kg

DRUGS (1)
  1. TASIGNA [Suspect]
     Active Substance: NILOTINIB
     Indication: CHRONIC MYELOID LEUKAEMIA
     Dosage: 200 MG, QID
     Route: 048
     Dates: start: 20090304

REACTIONS (15)
  - Abdominal distension [Unknown]
  - Monocyte percentage decreased [Unknown]
  - Headache [Unknown]
  - Splenomegaly [Unknown]
  - Increased tendency to bruise [Unknown]
  - Hepatitis [Unknown]
  - Incorrect drug administration duration [Unknown]
  - Neutrophil percentage increased [Unknown]
  - Weight decreased [Unknown]
  - Basophil percentage increased [Unknown]
  - Lymphocyte percentage decreased [Unknown]
  - Platelet count abnormal [Unknown]
  - Malaise [Unknown]
  - Arthralgia [Unknown]
  - Depression [Unknown]

NARRATIVE: CASE EVENT DATE: 20170504
